FAERS Safety Report 8770004 (Version 4)
Quarter: 2012Q4

REPORT INFORMATION
  Report Type: 
  Country: ES (occurrence: ES)
  Receive Date: 20120906
  Receipt Date: 20121023
  Transmission Date: 20130627
  Serious: Yes (Life-Threatening, Hospitalization, Other)
  Sender: FDA-Public Use
  Company Number: ES-GENZYME-THYM-1003403

PATIENT
  Age: 17 Year
  Sex: Female
  Weight: 56 kg

DRUGS (4)
  1. THYMOGLOBULINE [Suspect]
     Indication: BONE MARROW CONDITIONING REGIMEN
     Dosage: UNK
     Route: 042
     Dates: start: 20120420, end: 20120422
  2. FLUDARA [Suspect]
     Indication: PRODUCT USED FOR UNKNOWN INDICATION
     Dosage: UNK
     Route: 042
     Dates: start: 20120419, end: 20120421
  3. THIOTEPA [Concomitant]
     Indication: PRODUCT USED FOR UNKNOWN INDICATION
     Dosage: UNK
     Route: 042
     Dates: start: 20120417, end: 20120418
  4. BUSULFAN [Concomitant]
     Indication: PRODUCT USED FOR UNKNOWN INDICATION
     Dosage: UNK
     Route: 042
     Dates: start: 20120419, end: 20120421

REACTIONS (3)
  - Intestinal perforation [Unknown]
  - Intestinal mass [Unknown]
  - Post transplant lymphoproliferative disorder [Not Recovered/Not Resolved]
